FAERS Safety Report 15638160 (Version 1)
Quarter: 2018Q4

REPORT INFORMATION
  Report Type: Report from Study
  Country: US (occurrence: US)
  Receive Date: 20181120
  Receipt Date: 20181120
  Transmission Date: 20190205
  Serious: Yes (Hospitalization, Other)
  Sender: FDA-Public Use
  Company Number: US-PFIZER INC-2018463397

PATIENT
  Age: 81 Year
  Sex: Female
  Weight: 101.13 kg

DRUGS (4)
  1. PALBOCICLIB [Suspect]
     Active Substance: PALBOCICLIB
     Dosage: 100 MG, DAILY CYCLIC (DAYS 1-21 Q 28)
     Route: 048
     Dates: start: 20180426
  2. FASLODEX [Concomitant]
     Active Substance: FULVESTRANT
     Indication: BREAST CANCER
     Dosage: UNK
     Route: 030
     Dates: start: 20180426
  3. PROLIA [Concomitant]
     Active Substance: DENOSUMAB
     Indication: METASTASES TO BONE
     Dosage: UNK
     Route: 058
     Dates: start: 20180426
  4. PROCHLORPERAZINE MALEATE. [Concomitant]
     Active Substance: PROCHLORPERAZINE MALEATE
     Indication: NAUSEA
     Dosage: UNK, PRN
     Route: 048
     Dates: start: 20180426

REACTIONS (2)
  - Encephalopathy [Recovering/Resolving]
  - Transient ischaemic attack [Unknown]

NARRATIVE: CASE EVENT DATE: 20181020
